FAERS Safety Report 5283068-2 (Version None)
Quarter: 2007Q2

REPORT INFORMATION
  Report Type: 
  Country: None (occurrence: None)
  Receive Date: 20070402
  Receipt Date: 20070319
  Transmission Date: 20071010
  Serious: Yes (Other)
  Sender: FDA-Public Use
  Company Number: US-ELI_LILLY_AND_COMPANY-US200703000560

PATIENT
  Age: 21 Year
  Sex: Male

DRUGS (2)
  1. STRATTERA [Suspect]
  2. AMNESTEEM [Concomitant]

REACTIONS (2)
  - CONVULSION [None]
  - LOSS OF CONSCIOUSNESS [None]
